FAERS Safety Report 5604991-2 (Version None)
Quarter: 2008Q1

REPORT INFORMATION
  Report Type: 
  Country: None (occurrence: None)
  Receive Date: 20080128
  Receipt Date: 20080123
  Transmission Date: 20080703
  Serious: Yes (Death, Hospitalization, Other)
  Sender: FDA-Public Use
  Company Number: ZW-BOEHRINGER INGELHEIM PHARMACEUTICALS, INC.-2007-BP-19493BP

PATIENT
  Age: 12 Month
  Sex: Male
  Weight: 9 kg

DRUGS (9)
  1. VIRAMUNE [Suspect]
     Indication: HIV INFECTION
     Route: 048
     Dates: start: 20070516
  2. 3TC [Suspect]
     Indication: HIV INFECTION
     Route: 048
     Dates: start: 20070516
  3. ZIDOVUDINE [Suspect]
     Indication: HIV INFECTION
     Route: 048
     Dates: start: 20070516, end: 20071107
  4. D4T [Suspect]
     Indication: HIV INFECTION
     Route: 048
     Dates: start: 20071107
  5. COTRIMOXAZOLE [Concomitant]
     Dates: end: 20070820
  6. AMPICILLIN [Concomitant]
  7. GENTAMICIN [Concomitant]
  8. FOLATE [Concomitant]
  9. POTASSIUM CHLORIDE [Concomitant]

REACTIONS (6)
  - ANAEMIA [None]
  - DEATH [None]
  - DIARRHOEA [None]
  - HYPOKALAEMIA [None]
  - NEUTROPENIA [None]
  - THROMBOCYTOPENIA [None]
